FAERS Safety Report 7964882-9 (Version None)
Quarter: 2011Q4

REPORT INFORMATION
  Report Type: 
  Country: None (occurrence: None)
  Receive Date: 20111208
  Receipt Date: 20111208
  Transmission Date: 20120403
  Serious: Yes (Life-Threatening, Hospitalization, Other)
  Sender: FDA-Public Use
  Company Number: None

PATIENT
  Age: 28 Year
  Sex: Female
  Weight: 94.347 kg

DRUGS (1)
  1. YASMIN [Suspect]
     Indication: CONTRACEPTION
     Dosage: -1- THREE MONTH SHOT IN ARM
     Route: 030
     Dates: start: 20110918, end: 20110918

REACTIONS (2)
  - CHOLELITHIASIS [None]
  - PULMONARY EMBOLISM [None]
